FAERS Safety Report 15036575 (Version 1)
Quarter: 2018Q2

REPORT INFORMATION
  Report Type: Spontaneous
  Country: US (occurrence: US)
  Receive Date: 20180530
  Receipt Date: 20180530
  Transmission Date: 20180711
  Serious: Yes (Hospitalization)
  Sender: FDA-Public Use
  Company Number: None

PATIENT
  Age: 74 Year
  Sex: Female
  Weight: 63.5 kg

DRUGS (9)
  1. CALCIUM [Concomitant]
     Active Substance: CALCIUM
  2. WARFARIN [Concomitant]
     Active Substance: WARFARIN
  3. TYLENOL [Concomitant]
     Active Substance: ACETAMINOPHEN
  4. LEVOTHYROXINE. [Concomitant]
     Active Substance: LEVOTHYROXINE
  5. HYDROXYCHORAQUINE [Concomitant]
  6. PROLIA [Suspect]
     Active Substance: DENOSUMAB
     Indication: OSTEOPOROSIS
     Dosage: 1 SHOT EVERY 6 MOS. INJECTION
     Dates: start: 201203
  7. PREDNISONE. [Concomitant]
     Active Substance: PREDNISONE
  8. FLONASE [Concomitant]
     Active Substance: FLUTICASONE PROPIONATE
  9. MULTIPLE VITAMIN [Concomitant]
     Active Substance: VITAMINS

REACTIONS (3)
  - Fall [None]
  - Thrombosis [None]
  - Hip fracture [None]

NARRATIVE: CASE EVENT DATE: 20180407
